FAERS Safety Report 10173815 (Version 1)
Quarter: 2014Q2

REPORT INFORMATION
  Report Type: Spontaneous
  Country: US (occurrence: None)
  Receive Date: 20140425
  Receipt Date: 20140425
  Transmission Date: 20141212
  Serious: No
  Sender: FDA-Public Use
  Company Number: 1354438

PATIENT
  Sex: 0

DRUGS (2)
  1. VEMURAFENIB [Suspect]
     Indication: MALIGNANT MELANOMA
     Dosage: DOSE INTERRUPTED, UNKNOWN
  2. NIVOLUMAB [Suspect]
     Indication: MALIGNANT MELANOMA

REACTIONS (1)
  - Rash generalised [None]
